APPROVED DRUG PRODUCT: KEMEYA
Active Ingredient: DROSPIRENONE; ETHINYL ESTRADIOL
Strength: 3MG;0.03MG
Dosage Form/Route: TABLET;ORAL-28
Application: A202138 | Product #001
Applicant: SUN PHARMACEUTICAL INDUSTRIES LTD
Approved: Mar 13, 2019 | RLD: No | RS: No | Type: DISCN